FAERS Safety Report 19672721 (Version 1)
Quarter: 2021Q3

REPORT INFORMATION
  Report Type: Spontaneous
  Country: US (occurrence: US)
  Receive Date: 20210809
  Receipt Date: 20210809
  Transmission Date: 20211014
  Serious: Yes (Disabling, Other)
  Sender: FDA-Public Use
  Company Number: US-TEVA-2021-US-1939703

PATIENT
  Sex: Female

DRUGS (9)
  1. SUBUTEX [Suspect]
     Active Substance: BUPRENORPHINE HYDROCHLORIDE
     Route: 065
  2. HYDROCODONE [Suspect]
     Active Substance: HYDROCODONE
     Route: 065
  3. BUPRENORPHINE W/NALOXONE [Suspect]
     Active Substance: BUPRENORPHINE HYDROCHLORIDE\NALOXONE HYDROCHLORIDE
     Route: 065
  4. ENDOCET [Suspect]
     Active Substance: ACETAMINOPHEN\OXYCODONE HYDROCHLORIDE
     Route: 065
  5. SUBOXONE [Suspect]
     Active Substance: BUPRENORPHINE HYDROCHLORIDE\NALOXONE HYDROCHLORIDE
     Route: 065
  6. LORTAB [Suspect]
     Active Substance: ACETAMINOPHEN\HYDROCODONE BITARTRATE
     Route: 065
  7. OXYCODONE [Suspect]
     Active Substance: OXYCODONE
     Route: 065
  8. NUCYNTA [Suspect]
     Active Substance: TAPENTADOL HYDROCHLORIDE
     Route: 065
  9. PERCOCET [Suspect]
     Active Substance: ACETAMINOPHEN\OXYCODONE HYDROCHLORIDE
     Route: 065

REACTIONS (9)
  - Drug dependence [Unknown]
  - Amniotic fluid volume decreased [Unknown]
  - Carpal tunnel syndrome [Unknown]
  - Drug tolerance [Unknown]
  - Live birth [Unknown]
  - Compression fracture [Unknown]
  - Prescription drug used without a prescription [Unknown]
  - Premature delivery [Unknown]
  - Maternal exposure during pregnancy [Unknown]
